FAERS Safety Report 13054671 (Version 2)
Quarter: 2016Q4

REPORT INFORMATION
  Report Type: Spontaneous
  Country: IT (occurrence: IT)
  Receive Date: 20161222
  Receipt Date: 20161223
  Transmission Date: 20170207
  Serious: Yes (Hospitalization)
  Sender: FDA-Public Use
  Company Number: IT-JNJFOC-20161213530

PATIENT
  Age: 67 Year
  Sex: Female
  Weight: 86 kg

DRUGS (1)
  1. CANAGLIFLOZIN [Suspect]
     Active Substance: CANAGLIFLOZIN
     Indication: DIABETES MELLITUS
     Route: 048
     Dates: start: 20161025, end: 20161201

REACTIONS (1)
  - Rash pustular [Recovered/Resolved]

NARRATIVE: CASE EVENT DATE: 20161126
